FAERS Safety Report 9416494 (Version 2)
Quarter: 2013Q3

REPORT INFORMATION
  Report Type: Spontaneous
  Country: NL (occurrence: NL)
  Receive Date: 20130724
  Receipt Date: 20130725
  Transmission Date: 20140515
  Serious: Yes (Death, Other)
  Sender: FDA-Public Use
  Company Number: NL-TEVA-420750ISR

PATIENT
  Sex: Male

DRUGS (5)
  1. CISPLATIN [Suspect]
     Indication: SMALL CELL LUNG CANCER
     Dosage: INSUFFICIENT EFFECT
  2. ETOPOSIDE [Concomitant]
     Indication: SMALL CELL LUNG CANCER
     Dosage: INSUFFICIENT EFFECT
  3. CDE COURSES [Concomitant]
     Dosage: INSUFFICIENT EFFECT
  4. METOPROLOL TABLET 50 MG [Concomitant]
     Dosage: 50 MILLIGRAM DAILY;
     Route: 048
  5. CALCIUMCARBONAAT/COLECALCIFEROL KAUWTABLET 1,25G/800IE [Concomitant]
     Dosage: 1 DOSAGE FORMS DAILY; 1 DF: 1.25G CALCIUM CARBONATE AND 800 IU COLECALCIFEROL

REACTIONS (1)
  - Thrombosis [Fatal]
